FAERS Safety Report 10412503 (Version 1)
Quarter: 2014Q3

REPORT INFORMATION
  Report Type: Report from Study
  Country: BR (occurrence: BR)
  Receive Date: 20140827
  Receipt Date: 20140827
  Transmission Date: 20150326
  Serious: Yes (Death)
  Sender: FDA-Public Use
  Company Number: PHHY2014BR104240

PATIENT
  Sex: Male
  Weight: 58 kg

DRUGS (6)
  1. ALLOPURINOL. [Concomitant]
     Active Substance: ALLOPURINOL
  2. ATENOLOL. [Concomitant]
     Active Substance: ATENOLOL
  3. BENICAR [Concomitant]
     Active Substance: OLMESARTAN MEDOXOMIL
  4. VITAMIN B [Concomitant]
     Active Substance: VITAMIN B
  5. VITAMIN D [Concomitant]
     Active Substance: CHOLECALCIFEROL
  6. SIMVASTATIN. [Suspect]
     Active Substance: SIMVASTATIN

REACTIONS (1)
  - Death [Fatal]
